FAERS Safety Report 25887589 (Version 3)
Quarter: 2025Q4

REPORT INFORMATION
  Report Type: Spontaneous
  Country: CA (occurrence: CA)
  Receive Date: 20251007
  Receipt Date: 20251106
  Transmission Date: 20260117
  Serious: Yes (Death, Life-Threatening, Hospitalization, Disabling, Congenital Anomaly, Other)
  Sender: Haleon PLC
  Company Number: CA-002147023-NVSC2025CA152847

PATIENT
  Age: 43 Year
  Sex: Female
  Weight: 96 kg

DRUGS (257)
  1. FLONASE ALLERGY RELIEF [Suspect]
     Active Substance: FLUTICASONE PROPIONATE
     Indication: Product used for unknown indication
     Dosage: UNK, ROA: UNKNOWN
  2. DICLOFENAC [Suspect]
     Active Substance: DICLOFENAC
     Indication: Product used for unknown indication
     Dosage: ROUTE: UNKNOWN, SUPPOSITORY
  3. DICLOFENAC [Suspect]
     Active Substance: DICLOFENAC
     Indication: Rheumatoid arthritis
     Dosage: UNK, ROA: SUBCUTANEOUS USE
  4. DICLOFENAC [Suspect]
     Active Substance: DICLOFENAC
     Dosage: 50 MG, ROA: UNKNOWN
  5. DICLOFENAC [Suspect]
     Active Substance: DICLOFENAC
     Dosage: 50 MG, ROA: UNKNOWN
  6. DICLOFENAC [Suspect]
     Active Substance: DICLOFENAC
     Dosage: UNK (ROA-UNKNOWN)
  7. DICLOFENAC [Suspect]
     Active Substance: DICLOFENAC
     Dosage: UNK (ROA-UNKNOWN)
  8. DICLOFENAC [Suspect]
     Active Substance: DICLOFENAC
     Dosage: UNK
     Route: 050
  9. ERELZI [Suspect]
     Active Substance: ETANERCEPT-SZZS
     Indication: Rheumatoid arthritis
     Dosage: UNK
     Route: 050
  10. ERELZI [Suspect]
     Active Substance: ETANERCEPT-SZZS
     Dosage: UNK
  11. ERELZI [Suspect]
     Active Substance: ETANERCEPT-SZZS
     Dosage: UNK
  12. ERELZI [Suspect]
     Active Substance: ETANERCEPT-SZZS
     Dosage: UNK, ROA: SUBCUTANEOUS USE
  13. ERELZI [Suspect]
     Active Substance: ETANERCEPT-SZZS
     Dosage: 50 MG, ROA: SUBCUTANEOUS USE
  14. ERELZI [Suspect]
     Active Substance: ETANERCEPT-SZZS
     Dosage: UNK
     Route: 050
  15. ERELZI [Suspect]
     Active Substance: ETANERCEPT-SZZS
     Dosage: UNK
     Route: 050
  16. ERELZI [Suspect]
     Active Substance: ETANERCEPT-SZZS
     Dosage: UNK, ROA: SUBCUTANEOUS USE
  17. ERELZI [Suspect]
     Active Substance: ETANERCEPT-SZZS
     Dosage: 20 MG, ROA: SUBCUTANEOUS USE
     Route: 050
  18. ERELZI [Suspect]
     Active Substance: ETANERCEPT-SZZS
     Dosage: 50 MG, ROA: UNKNOWN
  19. ERELZI [Suspect]
     Active Substance: ETANERCEPT-SZZS
     Dosage: UNK
     Route: 050
  20. ERELZI [Suspect]
     Active Substance: ETANERCEPT-SZZS
     Dosage: UNK, ROA: UNKNOWN
  21. ERELZI [Suspect]
     Active Substance: ETANERCEPT-SZZS
     Dosage: 50 MG, ROA: UNKNOWN
     Route: 050
  22. ERELZI [Suspect]
     Active Substance: ETANERCEPT-SZZS
     Dosage: 50 MG, QW, ROA: SUBCUTANEOUS USE
     Route: 050
  23. LEFLUNOMIDE [Suspect]
     Active Substance: LEFLUNOMIDE
     Indication: Rheumatoid arthritis
     Dosage: 10 MG, QW
     Route: 048
  24. LEFLUNOMIDE [Suspect]
     Active Substance: LEFLUNOMIDE
     Dosage: 20 MG, QW (ROA-UNKNOWN)
  25. LEFLUNOMIDE [Suspect]
     Active Substance: LEFLUNOMIDE
     Indication: Rheumatoid arthritis
     Dosage: 20 MG, QD, ROA: UNKNOWN
  26. LEFLUNOMIDE [Suspect]
     Active Substance: LEFLUNOMIDE
     Dosage: 20 MG
     Route: 048
  27. LEFLUNOMIDE [Suspect]
     Active Substance: LEFLUNOMIDE
     Dosage: 1 MG, ROA: UNKNOWN
  28. LEFLUNOMIDE [Suspect]
     Active Substance: LEFLUNOMIDE
     Dosage: 10 MG, QD
     Route: 048
  29. LEFLUNOMIDE [Suspect]
     Active Substance: LEFLUNOMIDE
     Dosage: 20 MG, QD, ROA: UNKNOWN
     Route: 050
  30. LEFLUNOMIDE [Suspect]
     Active Substance: LEFLUNOMIDE
     Dosage: 20 MG, QD, ROA: UNKNOWN
  31. LEFLUNOMIDE [Suspect]
     Active Substance: LEFLUNOMIDE
     Dosage: UNK
  32. LEFLUNOMIDE [Suspect]
     Active Substance: LEFLUNOMIDE
     Dosage: UNK
     Route: 050
  33. LEFLUNOMIDE [Suspect]
     Active Substance: LEFLUNOMIDE
     Dosage: 1 DOSAGE FORM
  34. LEFLUNOMIDE [Suspect]
     Active Substance: LEFLUNOMIDE
     Dosage: UNK, ROA: UNKNOWN
  35. LEFLUNOMIDE [Suspect]
     Active Substance: LEFLUNOMIDE
     Dosage: 10 MG, ROA: UNKNOWN
  36. LEFLUNOMIDE [Suspect]
     Active Substance: LEFLUNOMIDE
     Dosage: 10 MG
     Route: 048
  37. LEFLUNOMIDE [Suspect]
     Active Substance: LEFLUNOMIDE
     Dosage: 20 MG
     Route: 048
  38. LEFLUNOMIDE [Suspect]
     Active Substance: LEFLUNOMIDE
     Dosage: 20 MG, QD
     Route: 048
  39. LEFLUNOMIDE [Suspect]
     Active Substance: LEFLUNOMIDE
     Dosage: UNK
  40. LEFLUNOMIDE [Suspect]
     Active Substance: LEFLUNOMIDE
     Dosage: UNK
     Route: 050
  41. LEFLUNOMIDE [Suspect]
     Active Substance: LEFLUNOMIDE
     Dosage: UNK, ROA: UNKNOWN
  42. LEFLUNOMIDE [Suspect]
     Active Substance: LEFLUNOMIDE
     Dosage: UNK
  43. LEFLUNOMIDE [Suspect]
     Active Substance: LEFLUNOMIDE
     Dosage: UNK
  44. LEFLUNOMIDE [Suspect]
     Active Substance: LEFLUNOMIDE
     Dosage: UNK
     Route: 048
  45. LEFLUNOMIDE [Suspect]
     Active Substance: LEFLUNOMIDE
     Dosage: 20 MG, QD
  46. PYRIDOXINE HYDROCHLORIDE [Suspect]
     Active Substance: PYRIDOXINE HYDROCHLORIDE
     Indication: Rheumatoid arthritis
     Dosage: UNK
  47. PYRIDOXINE HYDROCHLORIDE [Suspect]
     Active Substance: PYRIDOXINE HYDROCHLORIDE
     Dosage: UNK
  48. PYRIDOXINE HYDROCHLORIDE [Suspect]
     Active Substance: PYRIDOXINE HYDROCHLORIDE
     Dosage: UNK, ROA: UNKNOWN
  49. COSENTYX [Suspect]
     Active Substance: SECUKINUMAB
     Indication: Rheumatoid arthritis
     Dosage: UNK
     Route: 050
  50. COSENTYX [Suspect]
     Active Substance: SECUKINUMAB
     Indication: Psoriatic arthropathy
     Dosage: UNK
     Route: 050
  51. COSENTYX [Suspect]
     Active Substance: SECUKINUMAB
     Dosage: UNK
  52. COSENTYX [Suspect]
     Active Substance: SECUKINUMAB
     Dosage: UNK, ROA: INTRAVENOUS USE
  53. COSENTYX [Suspect]
     Active Substance: SECUKINUMAB
     Dosage: UNK
     Route: 050
  54. COSENTYX [Suspect]
     Active Substance: SECUKINUMAB
     Dosage: UNK
  55. COSENTYX [Suspect]
     Active Substance: SECUKINUMAB
     Dosage: UNK
  56. COSENTYX [Suspect]
     Active Substance: SECUKINUMAB
     Dosage: UNK, ROA: UNKNOWN
  57. COSENTYX [Suspect]
     Active Substance: SECUKINUMAB
     Dosage: UNK
     Route: 050
  58. COSENTYX [Suspect]
     Active Substance: SECUKINUMAB
     Dosage: UNK
     Route: 050
  59. COSENTYX [Suspect]
     Active Substance: SECUKINUMAB
     Dosage: UNK (ROA-UNKNOWN)
  60. COSENTYX [Suspect]
     Active Substance: SECUKINUMAB
     Dosage: UNK (ROA-UNKNOWN)
  61. COSENTYX [Suspect]
     Active Substance: SECUKINUMAB
     Dosage: UNK
  62. COSENTYX [Suspect]
     Active Substance: SECUKINUMAB
     Dosage: UNK, ROA: INTRAVENOUS USE
  63. COSENTYX [Suspect]
     Active Substance: SECUKINUMAB
     Dosage: UNK (ROA-UNKNOWN)
  64. COSENTYX [Suspect]
     Active Substance: SECUKINUMAB
     Dosage: UNK, ROA: INTRAVENOUS USE
  65. COSENTYX [Suspect]
     Active Substance: SECUKINUMAB
     Dosage: UNK
     Route: 050
  66. COSENTYX [Suspect]
     Active Substance: SECUKINUMAB
     Dosage: UNK, ROA: UNKNOWN
  67. ERGOCALCIFEROL [Suspect]
     Active Substance: ERGOCALCIFEROL
     Indication: Rheumatoid arthritis
     Dosage: UNK
  68. ERGOCALCIFEROL [Suspect]
     Active Substance: ERGOCALCIFEROL
     Dosage: UNK
  69. ERGOCALCIFEROL [Suspect]
     Active Substance: ERGOCALCIFEROL
     Dosage: UNK, ROA: UNKNOWN
  70. METHYLCOBALAMIN [Suspect]
     Active Substance: METHYLCOBALAMIN
     Indication: Product used for unknown indication
     Dosage: UNK
  71. METHYLCOBALAMIN [Suspect]
     Active Substance: METHYLCOBALAMIN
     Dosage: UNK
  72. METHYLCOBALAMIN [Suspect]
     Active Substance: METHYLCOBALAMIN
     Dosage: UNK, ROA: UNKNOWN
  73. REMICADE [Suspect]
     Active Substance: INFLIXIMAB
     Indication: Rheumatoid arthritis
     Dosage: 300 MG (DOSE FORM: POWDER FOR SOLUTION INTRAVENOUS, ROA-INTRAVENOUS BOLUS)
     Route: 050
  74. VOLTAREN [Suspect]
     Active Substance: DICLOFENAC SODIUM
     Indication: Product used for unknown indication
     Dosage: UNK
  75. AZULFIDINE [Suspect]
     Active Substance: SULFASALAZINE
     Indication: Product used for unknown indication
     Dosage: UNK
  76. AZULFIDINE [Suspect]
     Active Substance: SULFASALAZINE
     Dosage: UNK
  77. AZULFIDINE [Suspect]
     Active Substance: SULFASALAZINE
     Dosage: UNK, ROA: UNKNOWN
  78. NAPROXEN [Suspect]
     Active Substance: NAPROXEN
     Indication: Product used for unknown indication
     Dosage: 500 MG, ROA: UNKNOWN
  79. VITAMIN C [Suspect]
     Active Substance: ASCORBIC ACID
     Indication: Product used for unknown indication
     Dosage: 10 MG, QD
  80. VITAMIN C [Suspect]
     Active Substance: ASCORBIC ACID
     Dosage: UNK
  81. VITAMIN C [Suspect]
     Active Substance: ASCORBIC ACID
     Dosage: UNK, ROA: UNKNOWN
  82. VITAMIN C [Suspect]
     Active Substance: ASCORBIC ACID
     Dosage: UNK
  83. BETAMETHASONE [Suspect]
     Active Substance: BETAMETHASONE
     Indication: Product used for unknown indication
     Dosage: UNK
  84. BETAMETHASONE [Suspect]
     Active Substance: BETAMETHASONE
     Dosage: UNK
  85. BETAMETHASONE [Suspect]
     Active Substance: BETAMETHASONE
     Dosage: UNK, ROA: UNKNOWN
  86. OXYCODONE HYDROCHLORIDE [Suspect]
     Active Substance: OXYCODONE HYDROCHLORIDE
     Indication: Product used for unknown indication
     Dosage: UNK
  87. OXYCODONE HYDROCHLORIDE [Suspect]
     Active Substance: OXYCODONE HYDROCHLORIDE
     Dosage: UNK
  88. OXYCODONE HYDROCHLORIDE [Suspect]
     Active Substance: OXYCODONE HYDROCHLORIDE
     Dosage: UNK, ROA: UNKNOWN
  89. LEVOMILNACIPRAN [Suspect]
     Active Substance: LEVOMILNACIPRAN
     Indication: Rheumatoid arthritis
     Dosage: UNK
  90. LEVOMILNACIPRAN [Suspect]
     Active Substance: LEVOMILNACIPRAN
     Dosage: UNK
  91. LEVOMILNACIPRAN [Suspect]
     Active Substance: LEVOMILNACIPRAN
     Dosage: UNK, ROA: UNKNOWN
  92. LYSINE HYDROCHLORIDE [Suspect]
     Active Substance: LYSINE HYDROCHLORIDE
     Indication: Product used for unknown indication
     Dosage: UNK
  93. LYSINE HYDROCHLORIDE [Suspect]
     Active Substance: LYSINE HYDROCHLORIDE
     Dosage: UNK
  94. LYSINE HYDROCHLORIDE [Suspect]
     Active Substance: LYSINE HYDROCHLORIDE
     Dosage: UNK, ROA: UNKNOWN
  95. SULFAMETHOXAZOLE [Suspect]
     Active Substance: SULFAMETHOXAZOLE
     Indication: Product used for unknown indication
     Dosage: UNK
  96. SULFAMETHOXAZOLE [Suspect]
     Active Substance: SULFAMETHOXAZOLE
     Dosage: UNK
  97. SULFAMETHOXAZOLE [Suspect]
     Active Substance: SULFAMETHOXAZOLE
     Dosage: UNK, ROA: UNKNOWN
  98. OXYCODONE [Suspect]
     Active Substance: OXYCODONE
     Indication: Product used for unknown indication
     Dosage: UNK
  99. OXYCODONE [Suspect]
     Active Substance: OXYCODONE
     Dosage: UNK
  100. OXYCODONE [Suspect]
     Active Substance: OXYCODONE
     Dosage: UNK, ROA: UNKNOWN
  101. RAMIPRIL [Suspect]
     Active Substance: RAMIPRIL
     Indication: Rheumatoid arthritis
     Dosage: UNK (RHEUMATOID ARTHRITIS)
     Route: 050
  102. RAMIPRIL [Suspect]
     Active Substance: RAMIPRIL
     Dosage: UNK (RHEUMATOID ARTHRITIS)
     Route: 050
  103. RAMIPRIL [Suspect]
     Active Substance: RAMIPRIL
     Dosage: UNK (RHEUMATOID ARTHRITIS), ROA: INTRACARDIAC USE
  104. CALCIUM ASCORBATE [Suspect]
     Active Substance: CALCIUM ASCORBATE
     Indication: Product used for unknown indication
     Dosage: UNK
  105. CALCIUM ASCORBATE [Suspect]
     Active Substance: CALCIUM ASCORBATE
     Dosage: UNK
  106. CALCIUM ASCORBATE [Suspect]
     Active Substance: CALCIUM ASCORBATE
     Dosage: UNK, ROA: UNKNOWN
  107. DICLOFENAC SODIUM [Suspect]
     Active Substance: DICLOFENAC SODIUM
     Indication: Product used for unknown indication
     Dosage: UNK
  108. DICLOFENAC SODIUM [Suspect]
     Active Substance: DICLOFENAC SODIUM
     Dosage: UNK, ROA: SUBCUTANEOUS USE
  109. DICLOFENAC SODIUM [Suspect]
     Active Substance: DICLOFENAC SODIUM
     Dosage: UNK
     Route: 050
  110. DICLOFENAC SODIUM [Suspect]
     Active Substance: DICLOFENAC SODIUM
     Dosage: UNK, ROA: UNKNOWN
  111. DICLOFENAC SODIUM [Suspect]
     Active Substance: DICLOFENAC SODIUM
     Dosage: 50 MG, ROA; UNKNOWN
  112. DICLOFENAC SODIUM [Suspect]
     Active Substance: DICLOFENAC SODIUM
     Dosage: ROA: OPHTHALMIC
  113. ADALIMUMAB [Suspect]
     Active Substance: ADALIMUMAB
     Indication: Rheumatoid arthritis
     Dosage: 40 MG (DOSE FORM: SOLUTION SUBCUATANEOUS); ROA: SUBCUTANEOUS USE
     Route: 050
  114. NAPROXEN [Suspect]
     Active Substance: NAPROXEN
     Indication: Product used for unknown indication
     Dosage: 1000 MG, QD (ROA-UNKNOWN)
  115. TRAMADOL HYDROCHLORIDE [Suspect]
     Active Substance: TRAMADOL HYDROCHLORIDE
     Indication: Product used for unknown indication
     Dosage: UNK
  116. TRAMADOL HYDROCHLORIDE [Suspect]
     Active Substance: TRAMADOL HYDROCHLORIDE
     Indication: Migraine
     Dosage: UNK
  117. TRAMADOL HYDROCHLORIDE [Suspect]
     Active Substance: TRAMADOL HYDROCHLORIDE
     Dosage: UNK, ROA: UNKNOWN
  118. OXYCODONE TEREPHTHALATE [Suspect]
     Active Substance: OXYCODONE TEREPHTHALATE
     Indication: Rheumatoid arthritis
     Dosage: UNK
  119. OXYCODONE TEREPHTHALATE [Suspect]
     Active Substance: OXYCODONE TEREPHTHALATE
     Dosage: UNK
  120. OXYCODONE TEREPHTHALATE [Suspect]
     Active Substance: OXYCODONE TEREPHTHALATE
     Dosage: UNK, ROA: UNKNOWN
  121. FINACEA [Suspect]
     Active Substance: AZELAIC ACID
     Indication: Product used for unknown indication
     Dosage: UNK
  122. FINACEA [Suspect]
     Active Substance: AZELAIC ACID
     Dosage: UNK
  123. FINACEA [Suspect]
     Active Substance: AZELAIC ACID
     Dosage: UNK, ROA: UNKNOWN
  124. BUPRENORPHINE HYDROCHLORIDE [Suspect]
     Active Substance: BUPRENORPHINE HYDROCHLORIDE
     Indication: Product used for unknown indication
     Dosage: UNK
  125. BUPRENORPHINE HYDROCHLORIDE [Suspect]
     Active Substance: BUPRENORPHINE HYDROCHLORIDE
     Dosage: UNK
  126. BUPRENORPHINE HYDROCHLORIDE [Suspect]
     Active Substance: BUPRENORPHINE HYDROCHLORIDE
     Dosage: UNK, ROA: UNKNOWN
  127. TOFACITINIB [Suspect]
     Active Substance: TOFACITINIB
     Indication: Rheumatoid arthritis
     Dosage: 5 MG, ROA: UNKNOWN
  128. RITUXIMAB [Suspect]
     Active Substance: RITUXIMAB
     Indication: Abdominal discomfort
     Dosage: UNK
  129. RITUXIMAB [Suspect]
     Active Substance: RITUXIMAB
     Indication: Rheumatoid arthritis
     Dosage: UNK
     Route: 050
  130. RITUXIMAB [Suspect]
     Active Substance: RITUXIMAB
     Dosage: UNK
     Route: 050
  131. RITUXIMAB [Suspect]
     Active Substance: RITUXIMAB
     Dosage: UNK, ROA: UNKNOWN, DOSE FORM: SOLUTION FOR INFUSION
  132. RITUXIMAB [Suspect]
     Active Substance: RITUXIMAB
     Dosage: UNK
  133. RITUXIMAB [Suspect]
     Active Substance: RITUXIMAB
     Dosage: UNK
  134. RITUXIMAB [Suspect]
     Active Substance: RITUXIMAB
     Dosage: UNK
     Route: 050
  135. RITUXIMAB [Suspect]
     Active Substance: RITUXIMAB
     Dosage: UNK, DOSE FORM: SOLUTION FOR INFUSION, ROA: INTRAVENOUS USE
  136. RITUXIMAB [Suspect]
     Active Substance: RITUXIMAB
     Dosage: 350 MG
  137. RITUXIMAB [Suspect]
     Active Substance: RITUXIMAB
     Dosage: ROA: INTRAVESICAL USE
  138. RITUXIMAB [Suspect]
     Active Substance: RITUXIMAB
     Dosage: UNK
  139. RITUXIMAB [Suspect]
     Active Substance: RITUXIMAB
     Dosage: UNK, DOSE FORM: SOLUTION FOR INFUSION, ROA: INTRAVENOUS DRIP
  140. RITUXIMAB [Suspect]
     Active Substance: RITUXIMAB
     Dosage: UNK
  141. RITUXIMAB [Suspect]
     Active Substance: RITUXIMAB
     Dosage: UNK
  142. RITUXIMAB [Suspect]
     Active Substance: RITUXIMAB
     Dosage: UNK
     Route: 050
  143. RITUXIMAB [Suspect]
     Active Substance: RITUXIMAB
     Dosage: UNK, SOLUTION FOR INFUSION, ROA: UNKNOWN
  144. RITUXIMAB [Suspect]
     Active Substance: RITUXIMAB
     Dosage: 1 MG, SOLUTION FOR INFUSION, ROA: INTRAVENOUS
     Route: 050
  145. RITUXIMAB [Suspect]
     Active Substance: RITUXIMAB
     Dosage: UNK
     Route: 050
  146. RITUXIMAB [Suspect]
     Active Substance: RITUXIMAB
     Dosage: ROA: INTRAVENOUS DRIP
  147. RITUXIMAB [Suspect]
     Active Substance: RITUXIMAB
     Dosage: UNK
     Route: 050
  148. RITUXIMAB [Suspect]
     Active Substance: RITUXIMAB
     Dosage: UNK, SOLUTION FOR INFUSION, ROA: UNKNOWN
  149. RITUXIMAB [Suspect]
     Active Substance: RITUXIMAB
     Dosage: UNK
     Route: 050
  150. RITUXIMAB [Suspect]
     Active Substance: RITUXIMAB
     Dosage: UNK
     Route: 050
  151. RITUXIMAB [Suspect]
     Active Substance: RITUXIMAB
     Dosage: UNK
  152. RITUXIMAB [Suspect]
     Active Substance: RITUXIMAB
     Dosage: UNK, SOLUTION FOR INFUSION, ROA: INTRAVENOUS USE
  153. RITUXIMAB [Suspect]
     Active Substance: RITUXIMAB
     Dosage: 5 MG, SOLUTION FOR INFUSION
     Route: 048
  154. RITUXIMAB [Suspect]
     Active Substance: RITUXIMAB
     Dosage: 1 MG, SOLUTION FOR INFUSION ROA: INTRAVENOUS USE
     Route: 050
  155. RITUXIMAB [Suspect]
     Active Substance: RITUXIMAB
     Dosage: UNK
     Route: 041
  156. RITUXIMAB [Suspect]
     Active Substance: RITUXIMAB
     Dosage: UNK
  157. RITUXIMAB [Suspect]
     Active Substance: RITUXIMAB
     Dosage: UNK, SOLUTION FOR INFUSION, ROA: NTRACARDIAC USE
  158. RITUXIMAB [Suspect]
     Active Substance: RITUXIMAB
     Dosage: 365 MG (ROA-INTRAVENOUS BOLUS), SOLUTION FOR INFUSION
     Route: 050
  159. RITUXIMAB [Suspect]
     Active Substance: RITUXIMAB
     Dosage: UNK
     Route: 050
  160. RITUXIMAB [Suspect]
     Active Substance: RITUXIMAB
     Dosage: UNK, SOLUTION FOR INFUSION, ROA: SUBCUTANEOUS USE
  161. RITUXIMAB [Suspect]
     Active Substance: RITUXIMAB
     Dosage: UNK
  162. RITUXIMAB [Suspect]
     Active Substance: RITUXIMAB
     Dosage: UNK, SOLUTION FOR INFUSION, ROA: UNKNOWN
  163. RITUXIMAB [Suspect]
     Active Substance: RITUXIMAB
     Dosage: 25 MG, SOLUTION FOR INFUSION
     Route: 048
  164. RITUXIMAB [Suspect]
     Active Substance: RITUXIMAB
     Dosage: UNK
     Route: 050
  165. RITUXIMAB [Suspect]
     Active Substance: RITUXIMAB
     Dosage: UNK, SOLUTION FOR INFUSION, ROA: INTRAVESICAL USE
  166. RITUXIMAB [Suspect]
     Active Substance: RITUXIMAB
     Dosage: UNK
  167. RITUXIMAB [Suspect]
     Active Substance: RITUXIMAB
     Dosage: UNK, SOLUTION FOR INFUSION, ROA: INTRAVENOUS USE
  168. RITUXIMAB [Suspect]
     Active Substance: RITUXIMAB
     Dosage: 4 MG, SOLUTION FOR INFUSION
     Route: 048
  169. RITUXIMAB [Suspect]
     Active Substance: RITUXIMAB
     Dosage: UNK
     Route: 050
  170. RITUXIMAB [Suspect]
     Active Substance: RITUXIMAB
     Dosage: UNK, SOLUTION FOR INFUSION, ROA: UNKNOWN
  171. BERINERT [Suspect]
     Active Substance: HUMAN C1-ESTERASE INHIBITOR
     Indication: Product used for unknown indication
     Dosage: UNK
  172. BERINERT [Suspect]
     Active Substance: HUMAN C1-ESTERASE INHIBITOR
     Dosage: UNK
  173. BERINERT [Suspect]
     Active Substance: HUMAN C1-ESTERASE INHIBITOR
     Dosage: UNK, ROA: UNKNOWN
  174. DIETARY SUPPLEMENT\HERBALS [Suspect]
     Active Substance: DIETARY SUPPLEMENT\HERBALS
     Indication: Product used for unknown indication
     Dosage: UNK
  175. DIETARY SUPPLEMENT\HERBALS [Suspect]
     Active Substance: DIETARY SUPPLEMENT\HERBALS
     Dosage: UNK
  176. DIETARY SUPPLEMENT\HERBALS [Suspect]
     Active Substance: DIETARY SUPPLEMENT\HERBALS
     Dosage: UNK, ROA: UNKNOWN
  177. CANDESARTAN [Suspect]
     Active Substance: CANDESARTAN
     Indication: Migraine
     Dosage: UNK
     Route: 050
  178. CANDESARTAN [Suspect]
     Active Substance: CANDESARTAN
     Indication: Rheumatoid arthritis
     Dosage: UNK
     Route: 050
  179. CANDESARTAN [Suspect]
     Active Substance: CANDESARTAN
     Dosage: 1 DOSAGE FORM
     Route: 050
  180. CANDESARTAN [Suspect]
     Active Substance: CANDESARTAN
     Dosage: UNK, ROA: UNKNOWN
  181. CANDESARTAN [Suspect]
     Active Substance: CANDESARTAN
     Dosage: UNK
  182. CANDESARTAN [Suspect]
     Active Substance: CANDESARTAN
     Dosage: UNK
  183. CANDESARTAN [Suspect]
     Active Substance: CANDESARTAN
     Dosage: UNK
     Route: 048
  184. SULFATHIAZOLE [Suspect]
     Active Substance: SULFATHIAZOLE
     Indication: Product used for unknown indication
     Dosage: UNK (ROA-UNKNOWN, DOSE FORM-SPRAY)
  185. SULFATHIAZOLE [Suspect]
     Active Substance: SULFATHIAZOLE
     Dosage: UNK (ROA-UNKNOWN, DOSE FORM-SPRAY)
  186. SULFATHIAZOLE [Suspect]
     Active Substance: SULFATHIAZOLE
     Dosage: UNK (ROA-UNKNOWN, DOSE FORM-SPRAY)
  187. ALENDRONIC ACID [Suspect]
     Active Substance: ALENDRONIC ACID
     Indication: Rheumatoid arthritis
     Dosage: UNK (ROA-UNKNOWN)
     Route: 050
  188. ALENDRONIC ACID [Suspect]
     Active Substance: ALENDRONIC ACID
     Dosage: UNK (ROA-UNKNOWN)
     Route: 050
  189. ALENDRONIC ACID [Suspect]
     Active Substance: ALENDRONIC ACID
     Dosage: UNK (ROA-UNKNOWN)
     Route: 048
  190. PANTOPRAZOLE SODIUM [Suspect]
     Active Substance: PANTOPRAZOLE SODIUM
     Indication: Dyspepsia
     Dosage: UNK
  191. PANTOPRAZOLE SODIUM [Suspect]
     Active Substance: PANTOPRAZOLE SODIUM
     Dosage: UNK, ROA: INTRACARDIAC USE
  192. PANTOPRAZOLE SODIUM [Suspect]
     Active Substance: PANTOPRAZOLE SODIUM
     Dosage: UNK (TABLET, DELAYED RELEASE)
  193. PANTOPRAZOLE SODIUM [Suspect]
     Active Substance: PANTOPRAZOLE SODIUM
     Dosage: UNK (TABLET, DELAYED RELEASE), ROA: UNKNOWN
  194. PANTOPRAZOLE SODIUM [Suspect]
     Active Substance: PANTOPRAZOLE SODIUM
     Dosage: UNK
  195. PANTOPRAZOLE SODIUM [Suspect]
     Active Substance: PANTOPRAZOLE SODIUM
     Dosage: UNK (TABLET, DELAYED RELEASE)
  196. PANTOPRAZOLE SODIUM [Suspect]
     Active Substance: PANTOPRAZOLE SODIUM
     Dosage: UNK
     Route: 050
  197. PANTOPRAZOLE SODIUM [Suspect]
     Active Substance: PANTOPRAZOLE SODIUM
     Dosage: UNK, ROA: UNKNOWN
  198. PANTOPRAZOLE SODIUM [Suspect]
     Active Substance: PANTOPRAZOLE SODIUM
     Dosage: UNK
  199. PANTOPRAZOLE SODIUM [Suspect]
     Active Substance: PANTOPRAZOLE SODIUM
     Dosage: UNK, ROA: INTRACARDIAC USE
  200. PANTOPRAZOLE SODIUM [Suspect]
     Active Substance: PANTOPRAZOLE SODIUM
     Dosage: UNK
  201. PANTOPRAZOLE SODIUM [Suspect]
     Active Substance: PANTOPRAZOLE SODIUM
     Dosage: UNK, ROA: UNKNOWN
  202. METHYLPREDNISOLONE SODIUM SUCCINATE [Suspect]
     Active Substance: METHYLPREDNISOLONE SODIUM SUCCINATE
     Indication: Product used for unknown indication
     Dosage: UNK
  203. METHYLPREDNISOLONE SODIUM SUCCINATE [Suspect]
     Active Substance: METHYLPREDNISOLONE SODIUM SUCCINATE
     Dosage: UNK
  204. METHYLPREDNISOLONE SODIUM SUCCINATE [Suspect]
     Active Substance: METHYLPREDNISOLONE SODIUM SUCCINATE
     Dosage: UNK, ROA: UNKNOWN
  205. AIMOVIG [Suspect]
     Active Substance: ERENUMAB-AOOE
     Indication: Migraine
     Dosage: UNK (ROA-UNKNOWN, DOSE FORM-SOLUTION)
  206. AIMOVIG [Suspect]
     Active Substance: ERENUMAB-AOOE
     Dosage: UNK (ROA-UNKNOWN, DOSE FORM-SOLUTION)
  207. AIMOVIG [Suspect]
     Active Substance: ERENUMAB-AOOE
     Dosage: UNK (ROA-UNKNOWN, DOSE FORM-SOLUTION)
  208. GOLD SODIUM THIOMALATE [Suspect]
     Active Substance: GOLD SODIUM THIOMALATE
     Indication: Product used for unknown indication
     Dosage: UNK
  209. GOLD SODIUM THIOMALATE [Suspect]
     Active Substance: GOLD SODIUM THIOMALATE
     Dosage: UNK
  210. GOLD SODIUM THIOMALATE [Suspect]
     Active Substance: GOLD SODIUM THIOMALATE
     Dosage: UNK, ROA: UNKNOWN
  211. METHYLPREDNISOLONE [Suspect]
     Active Substance: METHYLPREDNISOLONE
     Indication: Rheumatoid arthritis
     Dosage: UNK
  212. METHYLPREDNISOLONE [Suspect]
     Active Substance: METHYLPREDNISOLONE
     Dosage: UNK
  213. METHYLPREDNISOLONE [Suspect]
     Active Substance: METHYLPREDNISOLONE
     Dosage: UNK, ROA: UNKNOWN
  214. METFORMIN HYDROCHLORIDE [Suspect]
     Active Substance: METFORMIN HYDROCHLORIDE
     Indication: Migraine
     Dosage: UNK, ROA: INTRAVENOUS BOLUS
  215. METFORMIN HYDROCHLORIDE [Suspect]
     Active Substance: METFORMIN HYDROCHLORIDE
     Dosage: UNK, ROA: INTRAVENOUS BOLUS
  216. METFORMIN HYDROCHLORIDE [Suspect]
     Active Substance: METFORMIN HYDROCHLORIDE
     Dosage: UNK, ROA: INTRAVENOUS BOLUS
  217. DIETARY SUPPLEMENT\HERBALS [Suspect]
     Active Substance: DIETARY SUPPLEMENT\HERBALS
     Indication: Product used for unknown indication
     Dosage: UNK
  218. DIETARY SUPPLEMENT\HERBALS [Suspect]
     Active Substance: DIETARY SUPPLEMENT\HERBALS
     Dosage: UNK
  219. DIETARY SUPPLEMENT\HERBALS [Suspect]
     Active Substance: DIETARY SUPPLEMENT\HERBALS
     Dosage: UNK, ROA: UNKNOWN
  220. NUCALA [Suspect]
     Active Substance: MEPOLIZUMAB
     Indication: Product used for unknown indication
     Dosage: UNK (ROA-UNKNOWN)
  221. NUCALA [Suspect]
     Active Substance: MEPOLIZUMAB
     Dosage: UNK (ROA-UNKNOWN)
  222. NUCALA [Suspect]
     Active Substance: MEPOLIZUMAB
     Dosage: UNK (ROA-UNKNOWN)
  223. MAGNESIUM CITRATE [Suspect]
     Active Substance: MAGNESIUM CITRATE
     Indication: Product used for unknown indication
     Dosage: UNK (ROA-UNKNOWN)
  224. MAGNESIUM CITRATE [Suspect]
     Active Substance: MAGNESIUM CITRATE
     Dosage: UNK (ROA-UNKNOWN)
  225. MAGNESIUM CITRATE [Suspect]
     Active Substance: MAGNESIUM CITRATE
     Dosage: UNK (ROA-UNKNOWN)
  226. TRIAMCINOLONE ACETONIDE [Suspect]
     Active Substance: TRIAMCINOLONE ACETONIDE
     Indication: Rheumatoid arthritis
     Dosage: UNK (DOSE FORM- SUSPENSION INTRA- ARTICULAR)
     Route: 050
  227. TRIAMCINOLONE ACETONIDE [Suspect]
     Active Substance: TRIAMCINOLONE ACETONIDE
     Dosage: UNK (DOSE FORM- SUSPENSION INTRA- ARTICULAR)
     Route: 050
  228. TRIAMCINOLONE ACETONIDE [Suspect]
     Active Substance: TRIAMCINOLONE ACETONIDE
     Dosage: UNK (DOSE FORM- SUSPENSION INTRA- ARTICULAR), ROA: INTRAARTICULAR USE
  229. PREDNISONE [Suspect]
     Active Substance: PREDNISONE
     Indication: Rheumatoid arthritis
     Dosage: 5 MG
     Route: 048
  230. MINOCYCLINE [Suspect]
     Active Substance: MINOCYCLINE HYDROCHLORIDE
     Indication: Product used for unknown indication
     Dosage: UNK
  231. MINOCYCLINE [Suspect]
     Active Substance: MINOCYCLINE HYDROCHLORIDE
     Dosage: UNK
  232. MINOCYCLINE [Suspect]
     Active Substance: MINOCYCLINE HYDROCHLORIDE
     Dosage: UNK, ROA: UNKNOWN
  233. VOLTAREN [Suspect]
     Active Substance: DICLOFENAC SODIUM
     Indication: Rheumatoid arthritis
     Dosage: UNK (ROA-UNKNOWN)
  234. VOLTAREN [Suspect]
     Active Substance: DICLOFENAC SODIUM
     Indication: Product used for unknown indication
     Dosage: 50 MG
  235. VOLTAREN [Suspect]
     Active Substance: DICLOFENAC SODIUM
     Dosage: 50 MG
  236. VOLTAREN [Suspect]
     Active Substance: DICLOFENAC SODIUM
     Dosage: UNK
     Route: 050
  237. PHENYLEPHRINE HYDROCHLORIDE [Suspect]
     Active Substance: PHENYLEPHRINE HYDROCHLORIDE
     Indication: Rheumatoid arthritis
     Dosage: 10 MG (ROA-UNKNOWN), ROA: INTRAMUSCULAR USE
     Route: 050
  238. XELJANZ [Suspect]
     Active Substance: TOFACITINIB CITRATE
     Indication: Rheumatoid arthritis
     Dosage: 5 MG, QD, ROA: UNKNOWN
  239. XELJANZ [Suspect]
     Active Substance: TOFACITINIB CITRATE
     Dosage: 10 MG, QD, ROA: UNKNOWN
  240. PSEUDOEPHEDRINE HYDROCHLORIDE [Suspect]
     Active Substance: PSEUDOEPHEDRINE HYDROCHLORIDE
     Indication: Rheumatoid arthritis
     Dosage: 1 MG
  241. PSEUDOEPHEDRINE HYDROCHLORIDE [Suspect]
     Active Substance: PSEUDOEPHEDRINE HYDROCHLORIDE
     Dosage: 10 MG
  242. PSEUDOEPHEDRINE HYDROCHLORIDE [Suspect]
     Active Substance: PSEUDOEPHEDRINE HYDROCHLORIDE
     Dosage: 25 MG
  243. SULFASALAZINE [Suspect]
     Active Substance: SULFASALAZINE
     Indication: Product used for unknown indication
     Dosage: UNK
  244. SULFASALAZINE [Suspect]
     Active Substance: SULFASALAZINE
     Dosage: UNK
  245. SULFASALAZINE [Suspect]
     Active Substance: SULFASALAZINE
     Dosage: UNK, ROA: UNKNOWN
  246. GOLD SODIUM THIOMALATE [Suspect]
     Active Substance: GOLD SODIUM THIOMALATE
     Indication: Product used for unknown indication
     Dosage: UNK
     Route: 050
  247. GOLD SODIUM THIOMALATE [Suspect]
     Active Substance: GOLD SODIUM THIOMALATE
     Dosage: UNK
     Route: 050
  248. GOLD SODIUM THIOMALATE [Suspect]
     Active Substance: GOLD SODIUM THIOMALATE
     Dosage: UNK, ROA: INTRAMUSCULAR USE
  249. RANITIDINE HYDROCHLORIDE [Suspect]
     Active Substance: RANITIDINE HYDROCHLORIDE
     Indication: Rheumatoid arthritis
     Dosage: UNK
  250. DICLOFENAC SODIUM [Suspect]
     Active Substance: DICLOFENAC SODIUM
     Indication: Product used for unknown indication
     Dosage: ROA: OPHTHALMIC
  251. DICLOFENAC SODIUM [Suspect]
     Active Substance: DICLOFENAC SODIUM
     Dosage: ROA: OPHTHALMIC
  252. DICLOFENAC SODIUM [Suspect]
     Active Substance: DICLOFENAC SODIUM
     Dosage: UNK
     Route: 050
  253. DICLOFENAC SODIUM [Suspect]
     Active Substance: DICLOFENAC SODIUM
     Dosage: 50 MG
  254. DICLOFENAC SODIUM [Suspect]
     Active Substance: DICLOFENAC SODIUM
     Dosage: UNK
  255. VITAMIN D3 [Suspect]
     Active Substance: CHOLECALCIFEROL
     Indication: Product used for unknown indication
     Dosage: UNK
  256. VITAMIN D3 [Suspect]
     Active Substance: CHOLECALCIFEROL
     Dosage: UNK
  257. HYDROCORTISONE [Suspect]
     Active Substance: HYDROCORTISONE
     Indication: Rheumatoid arthritis
     Dosage: 25 MG?ROA; UNKNOWN

REACTIONS (36)
  - Deep vein thrombosis postoperative [Fatal]
  - Blood cholesterol increased [Fatal]
  - Joint swelling [Fatal]
  - Muscle spasms [Fatal]
  - Paraesthesia [Fatal]
  - Depression [Fatal]
  - Dizziness [Fatal]
  - Irritable bowel syndrome [Fatal]
  - Glossodynia [Fatal]
  - Blepharospasm [Fatal]
  - Memory impairment [Fatal]
  - Impaired healing [Fatal]
  - Decreased appetite [Fatal]
  - Visual impairment [Fatal]
  - Folliculitis [Fatal]
  - Exposure during pregnancy [Fatal]
  - Joint range of motion decreased [Fatal]
  - Dry mouth [Fatal]
  - Gastrooesophageal reflux disease [Fatal]
  - Diarrhoea [Fatal]
  - Infusion related reaction [Fatal]
  - Night sweats [Fatal]
  - Lung disorder [Fatal]
  - Headache [Fatal]
  - Hypocholesterolaemia [Fatal]
  - Retinitis [Fatal]
  - Hepatic enzyme increased [Fatal]
  - General physical health deterioration [Fatal]
  - Chest pain [Fatal]
  - Osteoarthritis [Fatal]
  - Urticaria [Fatal]
  - Hypertension [Fatal]
  - Rheumatoid arthritis [Fatal]
  - Contusion [Fatal]
  - Asthma [Fatal]
  - Stomatitis [Fatal]
